FAERS Safety Report 4553745-7 (Version None)
Quarter: 2005Q1

REPORT INFORMATION
  Report Type: 
  Country: None (occurrence: None)
  Receive Date: 20050114
  Receipt Date: 20050114
  Transmission Date: 20050727
  Serious: Yes (Death)
  Sender: FDA-Public Use
  Company Number: None

PATIENT
  Age: 61 Year
  Sex: Female
  Weight: 48 kg

DRUGS (9)
  1. GEMCITABINE [Suspect]
     Indication: NON-SMALL CELL LUNG CANCER
     Dosage: 1500 MG/M2   QOW INTRAVENOUS
     Route: 042
     Dates: start: 20041015, end: 20041126
  2. PEMETREXED [Suspect]
     Indication: NON-SMALL CELL LUNG CANCER
     Dosage: 500 MG/M2  QOW  INTRAVENOUS
     Route: 042
     Dates: start: 20041015, end: 20041126
  3. OXYCODONE HCL [Concomitant]
  4. TEMAZEPAM [Concomitant]
  5. MORPHINE [Concomitant]
  6. DECADRON [Concomitant]
  7. LISINOPRIL [Concomitant]
  8. FOLIC ACID [Concomitant]
  9. COMPAZINE [Concomitant]

REACTIONS (1)
  - PERIPHERAL OCCLUSIVE DISEASE [None]
